FAERS Safety Report 4577857-7 (Version None)
Quarter: 2005Q1

REPORT INFORMATION
  Report Type: 
  Country: None (occurrence: None)
  Receive Date: 20050209
  Receipt Date: 20050128
  Transmission Date: 20050727
  Serious: Yes (Disabling)
  Sender: FDA-Public Use
  Company Number: 2005021275

PATIENT
  Age: 73 Year
  Sex: Female

DRUGS (6)
  1. LIPITOR [Suspect]
     Indication: HYPERCHOLESTEROLAEMIA
     Dosage: 5 MG (1 IN 1 D), ORAL
     Route: 048
     Dates: end: 20050101
  2. TICLOPIDINE HCL [Concomitant]
  3. PERINDOPRIL ERBUMINE (PERINDOPRIL ERBUMINE) [Concomitant]
  4. CANDESARTAN CILEXETIL (CANDESARTAN CILEXETIL) [Concomitant]
  5. AMLODIPINE BESYLATE [Concomitant]
  6. TOCOPHERYL NICOTINATE (TOCOPHERYL NICOTINATE) [Concomitant]

REACTIONS (4)
  - ABDOMINAL DISTENSION [None]
  - INSOMNIA [None]
  - MONOPARESIS [None]
  - MUSCULAR WEAKNESS [None]
